FAERS Safety Report 6373644-8 (Version None)
Quarter: 2009Q3

REPORT INFORMATION
  Report Type: 
  Country: None (occurrence: None)
  Receive Date: 20090924
  Receipt Date: 20090917
  Transmission Date: 20100115
  Serious: Yes (Hospitalization, Other)
  Sender: FDA-Public Use
  Company Number: US-PFIZER INC-2009248245

PATIENT
  Age: 36 Year
  Sex: Female

DRUGS (5)
  1. GEODON [Suspect]
     Indication: BIPOLAR DISORDER
     Dosage: 40 MG, 1X/DAY
     Dates: start: 20090601, end: 20090701
  2. GEODON [Suspect]
     Indication: INSOMNIA
  3. LORAZEPAM [Concomitant]
  4. SELEGILINE [Concomitant]
  5. LAMOTRIGINE [Concomitant]

REACTIONS (6)
  - APHASIA [None]
  - DRUG SCREEN POSITIVE [None]
  - DYSKINESIA [None]
  - EXTRAPYRAMIDAL DISORDER [None]
  - RASH [None]
  - RESTLESS LEGS SYNDROME [None]
